FAERS Safety Report 12643140 (Version 1)
Quarter: 2016Q3

REPORT INFORMATION
  Report Type: Spontaneous
  Country: US (occurrence: US)
  Receive Date: 20160811
  Receipt Date: 20160811
  Transmission Date: 20161109
  Serious: No
  Sender: FDA-Public Use
  Company Number: US-BEH-2016072136

PATIENT
  Sex: Female
  Weight: 56.69 kg

DRUGS (21)
  1. HIZENTRA [Suspect]
     Active Substance: HUMAN IMMUNOGLOBULIN G
     Indication: SELECTIVE IGG SUBCLASS DEFICIENCY
     Route: 058
  2. BUSPIRONE [Concomitant]
     Active Substance: BUSPIRONE HYDROCHLORIDE
  3. FLONASE [Concomitant]
     Active Substance: FLUTICASONE PROPIONATE
  4. LAMICTAL [Concomitant]
     Active Substance: LAMOTRIGINE
  5. PROBIOTIC                          /06395501/ [Concomitant]
     Active Substance: BIFIDOBACTERIUM ANIMALIS SUBSP. LACTIS
  6. TRETINOIN. [Concomitant]
     Active Substance: TRETINOIN
  7. FISH OIL                           /00492901/ [Concomitant]
     Active Substance: COD LIVER OIL
  8. HIZENTRA [Suspect]
     Active Substance: HUMAN IMMUNOGLOBULIN G
     Dosage: 7 G, QW
     Route: 058
     Dates: start: 20160311
  9. AZATHIOPRINE. [Concomitant]
     Active Substance: AZATHIOPRINE
  10. FLUOXETINE [Concomitant]
     Active Substance: FLUOXETINE HYDROCHLORIDE
  11. LIDOCAINE. [Concomitant]
     Active Substance: LIDOCAINE
  12. HIZENTRA [Suspect]
     Active Substance: HUMAN IMMUNOGLOBULIN G
     Dosage: UNK
     Route: 058
  13. EPIPEN [Concomitant]
     Active Substance: EPINEPHRINE
  14. HYDROXYCHLOROQUINE [Concomitant]
     Active Substance: HYDROXYCHLOROQUINE
  15. HIZENTRA [Suspect]
     Active Substance: HUMAN IMMUNOGLOBULIN G
     Dosage: UNK
     Route: 058
  16. IBUPROFEN. [Concomitant]
     Active Substance: IBUPROFEN
  17. ACETAMINOPHEN. [Concomitant]
     Active Substance: ACETAMINOPHEN
  18. ALPRAZOLAM. [Concomitant]
     Active Substance: ALPRAZOLAM
  19. DIPHENHYDRAMINE. [Concomitant]
     Active Substance: DIPHENHYDRAMINE
  20. CLEOCIN [Concomitant]
     Active Substance: CLINDAMYCIN PHOSPHATE
  21. CONCERTA [Concomitant]
     Active Substance: METHYLPHENIDATE HYDROCHLORIDE

REACTIONS (1)
  - Arthralgia [Unknown]
